FAERS Safety Report 23098759 (Version 1)
Quarter: 2023Q4

REPORT INFORMATION
  Report Type: Spontaneous
  Country: GR (occurrence: GR)
  Receive Date: 20231024
  Receipt Date: 20231024
  Transmission Date: 20240110
  Serious: Yes (Disabling)
  Sender: FDA-Public Use
  Company Number: GR-PFIZER INC-PV202300155159

PATIENT
  Age: 77 Year
  Sex: Female
  Weight: 50 kg

DRUGS (3)
  1. AXITINIB [Suspect]
     Active Substance: AXITINIB
     Indication: Metastatic renal cell carcinoma
     Dosage: 5 MG, 2X/DAY
     Route: 048
     Dates: start: 20230822, end: 20230829
  2. PEMBROLIZUMAB [Suspect]
     Active Substance: PEMBROLIZUMAB
     Indication: Metastatic renal cell carcinoma
     Dosage: UNK
  3. AMLODIPINE BESYLATE\VALSARTAN [Concomitant]
     Active Substance: AMLODIPINE BESYLATE\VALSARTAN
     Dosage: 1/2 X 1

REACTIONS (12)
  - Pyrexia [Recovering/Resolving]
  - Inflammatory marker increased [Unknown]
  - Bone pain [Unknown]
  - Hypertension [Recovering/Resolving]
  - Decreased appetite [Recovering/Resolving]
  - Nausea [Recovering/Resolving]
  - Vomiting [Recovering/Resolving]
  - Hyponatraemia [Recovering/Resolving]
  - Constipation [Recovering/Resolving]
  - Hypothermia [Recovering/Resolving]
  - Pain [Recovering/Resolving]
  - Influenza [Unknown]

NARRATIVE: CASE EVENT DATE: 20230801
